FAERS Safety Report 6435619-X (Version None)
Quarter: 2009Q4

REPORT INFORMATION
  Report Type: 
  Country: None (occurrence: None)
  Receive Date: 20091111
  Receipt Date: 20091102
  Transmission Date: 20100525
  Serious: Yes (Other)
  Sender: FDA-Public Use
  Company Number: US-JNJFOC-20091100957

PATIENT
  Age: 61 Year
  Sex: Male
  Weight: 175.09 kg

DRUGS (2)
  1. IMODIUM A-D [Suspect]
     Route: 048
     Dates: end: 20091102
  2. IMODIUM A-D [Suspect]
     Indication: DIARRHOEA
     Route: 048
     Dates: end: 20091102

REACTIONS (2)
  - CONSTIPATION [None]
  - DRUG INEFFECTIVE [None]
